FAERS Safety Report 14677922 (Version 1)
Quarter: 2018Q1

REPORT INFORMATION
  Report Type: Other
  Country: US (occurrence: US)
  Receive Date: 20180326
  Receipt Date: 20180326
  Transmission Date: 20180509
  Serious: No
  Sender: FDA-Public Use
  Company Number: US-LUPIN PHARMACEUTICALS INC.-2018-01361

PATIENT

DRUGS (1)
  1. HYDROCODONE BITARTRATE AND ACETAMINOPHEN [Suspect]
     Active Substance: ACETAMINOPHEN\HYDROCODONE BITARTRATE
     Indication: PAIN
     Dosage: 325 MG/10 MG, UNK
     Route: 065

REACTIONS (3)
  - Vomiting [Unknown]
  - Nausea [Unknown]
  - Drug ineffective [Unknown]
